FAERS Safety Report 14095442 (Version 1)
Quarter: 2017Q4

REPORT INFORMATION
  Report Type: Report from Study
  Country: US (occurrence: US)
  Receive Date: 20171017
  Receipt Date: 20171017
  Transmission Date: 20180321
  Serious: Yes (Death, Other)
  Sender: FDA-Public Use
  Company Number: US-ROCHE-1948760

PATIENT

DRUGS (7)
  1. TACROLIMUS. [Suspect]
     Active Substance: TACROLIMUS
     Indication: IMMUNOSUPPRESSION
     Dosage: 0.03 TO 0.05 MG/KG/D
     Route: 042
  2. METHYLPREDNISOLONE. [Suspect]
     Active Substance: METHYLPREDNISOLONE
     Indication: IMMUNOSUPPRESSION
     Route: 065
  3. MUROMONAB-CD3 [Suspect]
     Active Substance: MUROMONAB-CD3
     Indication: IMMUNOSUPPRESSION
     Dosage: FOR 5 TO 10 DAYS
     Route: 042
  4. MYCOPHENOLATE MOFETIL. [Suspect]
     Active Substance: MYCOPHENOLATE MOFETIL
     Indication: IMMUNOSUPPRESSION
     Route: 048
  5. METHYLPREDNISOLONE. [Suspect]
     Active Substance: METHYLPREDNISOLONE
     Route: 065
  6. TACROLIMUS. [Suspect]
     Active Substance: TACROLIMUS
     Route: 048
  7. PREDNISONE. [Suspect]
     Active Substance: PREDNISONE
     Indication: IMMUNOSUPPRESSION
     Dosage: TAPERED TO 20 MG
     Route: 065

REACTIONS (7)
  - Sepsis [Fatal]
  - Infection [Unknown]
  - Blood disorder [Unknown]
  - Multiple organ dysfunction syndrome [Fatal]
  - Gastrointestinal disorder [Unknown]
  - Hepatitis C [Unknown]
  - Post transplant lymphoproliferative disorder [Fatal]
